FAERS Safety Report 7385964-9 (Version None)
Quarter: 2011Q1

REPORT INFORMATION
  Report Type: 
  Country: None (occurrence: None)
  Receive Date: 20110331
  Receipt Date: 20110317
  Transmission Date: 20110831
  Serious: Yes (Hospitalization)
  Sender: FDA-Public Use
  Company Number: US-JNJFOC-20110303779

PATIENT
  Sex: Male
  Weight: 50.08 kg

DRUGS (4)
  1. THALIDOMIDE [Concomitant]
  2. IRON [Concomitant]
  3. REMICADE [Suspect]
     Indication: INFLAMMATORY BOWEL DISEASE
     Route: 042
  4. VITAMIN D [Concomitant]

REACTIONS (2)
  - DEHYDRATION [None]
  - CROHN'S DISEASE [None]
